FAERS Safety Report 4931883-4 (Version None)
Quarter: 2006Q1

REPORT INFORMATION
  Report Type: 
  Country: None (occurrence: None)
  Receive Date: 20060303
  Receipt Date: 20051013
  Transmission Date: 20060701
  Serious: Yes (Death, Hospitalization)
  Sender: FDA-Public Use
  Company Number: PR-MERCK-0510USA07546

PATIENT
  Age: 86 Year
  Sex: Female

DRUGS (3)
  1. VIOXX [Suspect]
     Indication: OSTEOARTHRITIS
     Route: 048
     Dates: start: 19990101, end: 20011221
  2. TYLENOL (CAPLET) [Concomitant]
     Route: 065
  3. ZOCOR [Concomitant]
     Route: 048

REACTIONS (6)
  - ACUTE MYOCARDIAL INFARCTION [None]
  - BRONCHITIS [None]
  - HYPERTENSION [None]
  - INFLUENZA [None]
  - OSTEOARTHRITIS [None]
  - OVERDOSE [None]
